FAERS Safety Report 17589455 (Version 1)
Quarter: 2020Q1

REPORT INFORMATION
  Report Type: Spontaneous
  Country: US (occurrence: US)
  Receive Date: 20200327
  Receipt Date: 20200327
  Transmission Date: 20200409
  Serious: No
  Sender: FDA-Public Use
  Company Number: US-ALLERGAN-1940469US

PATIENT
  Sex: Female

DRUGS (2)
  1. SYNTHROID [Concomitant]
     Active Substance: LEVOTHYROXINE SODIUM
     Indication: HYPOTHYROIDISM
  2. LATISSE [Suspect]
     Active Substance: BIMATOPROST
     Indication: GROWTH OF EYELASHES
     Dosage: 2 GTT, QHS
     Route: 061
     Dates: start: 20190830, end: 20190929

REACTIONS (5)
  - Eyelid sensory disorder [Recovered/Resolved]
  - Eye swelling [Recovered/Resolved]
  - Swelling of eyelid [Recovered/Resolved]
  - Eye irritation [Recovered/Resolved]
  - Headache [Recovered/Resolved]
